FAERS Safety Report 8476614-9 (Version None)
Quarter: 2012Q2

REPORT INFORMATION
  Report Type: 
  Country: None (occurrence: None)
  Receive Date: 20120628
  Receipt Date: 20120626
  Transmission Date: 20120825
  Serious: Yes (Other)
  Sender: FDA-Public Use
  Company Number: FR-AMGEN-FRASP2012029457

PATIENT
  Age: 84 Year
  Sex: Female
  Weight: 50 kg

DRUGS (3)
  1. RENAGEL [Concomitant]
     Indication: HYPERPHOSPHATAEMIA
     Dosage: UNK
     Dates: start: 20080618, end: 20120426
  2. PROLIA [Suspect]
     Indication: PRODUCT USED FOR UNKNOWN INDICATION
     Dosage: UNK
     Route: 058
     Dates: start: 20120301
  3. CINACALCET HYDROCHLORIDE [Concomitant]
     Indication: HYPERPARATHYROIDISM SECONDARY
     Dosage: 60 UNK, UNK
     Route: 048
     Dates: start: 20110210

REACTIONS (3)
  - HYPOCALCAEMIA [None]
  - HYPERPARATHYROIDISM [None]
  - BLOOD PHOSPHORUS ABNORMAL [None]
